FAERS Safety Report 6366616-0 (Version None)
Quarter: 2009Q3

REPORT INFORMATION
  Report Type: 
  Country: None (occurrence: None)
  Receive Date: 20090921
  Receipt Date: 20090909
  Transmission Date: 20100115
  Serious: Yes (Other)
  Sender: FDA-Public Use
  Company Number: PHHY2009CA38758

PATIENT
  Sex: Female

DRUGS (1)
  1. EXJADE [Suspect]
     Indication: APLASIA PURE RED CELL
     Dosage: UNK
     Route: 048
     Dates: start: 20090701

REACTIONS (2)
  - DEPRESSION [None]
  - INSOMNIA [None]
